FAERS Safety Report 13785257 (Version 1)
Quarter: 2017Q3

REPORT INFORMATION
  Report Type: Spontaneous
  Country: FR (occurrence: FR)
  Receive Date: 20170724
  Receipt Date: 20170724
  Transmission Date: 20171127
  Serious: Yes (Hospitalization, Other)
  Sender: FDA-Public Use
  Company Number: FR-BRISTOL-MYERS SQUIBB COMPANY-BMS-2017-061094

PATIENT
  Age: 74 Year
  Sex: Female

DRUGS (9)
  1. GLUCOPHAGE XR [Suspect]
     Active Substance: METFORMIN HYDROCHLORIDE
     Indication: TYPE 2 DIABETES MELLITUS
     Dosage: 3 G, TID
     Route: 048
  2. SEROPLEX [Concomitant]
     Active Substance: ESCITALOPRAM OXALATE
     Indication: PRODUCT USE IN UNAPPROVED INDICATION
     Route: 065
  3. CARMELLOSE [Concomitant]
     Indication: PRODUCT USE IN UNAPPROVED INDICATION
     Dosage: 1 DF, UNK
     Route: 065
  4. IMOVANE [Concomitant]
     Active Substance: ZOPICLONE
     Indication: PRODUCT USE IN UNAPPROVED INDICATION
     Route: 065
  5. SOLIAN [Concomitant]
     Active Substance: AMISULPRIDE
     Indication: PRODUCT USE IN UNAPPROVED INDICATION
     Route: 065
  6. MOPRAL                             /00661201/ [Concomitant]
     Active Substance: OMEPRAZOLE SODIUM
     Indication: PRODUCT USE IN UNAPPROVED INDICATION
     Route: 065
  7. DIOSMINE [Concomitant]
     Active Substance: DIOSMIN
     Indication: PRODUCT USE IN UNAPPROVED INDICATION
     Route: 065
  8. LEXOMIL [Concomitant]
     Active Substance: BROMAZEPAM
     Indication: PRODUCT USE IN UNAPPROVED INDICATION
     Dosage: 1 DF, UNK
     Route: 065
  9. LANTUS [Concomitant]
     Active Substance: INSULIN GLARGINE
     Indication: PRODUCT USE IN UNAPPROVED INDICATION
     Route: 065

REACTIONS (7)
  - Gastroduodenal ulcer [Unknown]
  - Anaemia vitamin B12 deficiency [Not Recovered/Not Resolved]
  - Lactic acidosis [Recovered/Resolved]
  - Packed red blood cell transfusion [Unknown]
  - Hyperglycaemia [Unknown]
  - Oesophageal polyp [Unknown]
  - Melaena [Unknown]
